FAERS Safety Report 16707350 (Version 1)
Quarter: 2019Q3

REPORT INFORMATION
  Report Type: Spontaneous
  Country: FR (occurrence: FR)
  Receive Date: 20190815
  Receipt Date: 20190815
  Transmission Date: 20191004
  Serious: Yes (Other)
  Sender: FDA-Public Use
  Company Number: PHHY2019FR190167

PATIENT
  Age: 74 Year
  Sex: Female

DRUGS (2)
  1. BISOPROLOL FUMARATE. [Suspect]
     Active Substance: BISOPROLOL FUMARATE
     Indication: ARRHYTHMIA
     Dosage: 2.5 MG, UNK
     Route: 065
     Dates: start: 201901
  2. BISOPROLOL FUMARATE. [Suspect]
     Active Substance: BISOPROLOL FUMARATE
     Dosage: 1.25 MG, UNK
     Route: 065

REACTIONS (9)
  - Skin discolouration [Unknown]
  - Pain [Unknown]
  - Product use in unapproved indication [Unknown]
  - Sjogren^s syndrome [Unknown]
  - Sleep disorder [Unknown]
  - Rhinorrhoea [Unknown]
  - Epistaxis [Unknown]
  - Muscle spasms [Unknown]
  - Pruritus [Unknown]

NARRATIVE: CASE EVENT DATE: 20190726
